FAERS Safety Report 20913143 (Version 1)
Quarter: 2022Q2

REPORT INFORMATION
  Report Type: Other
  Country: US (occurrence: US)
  Receive Date: 20220603
  Receipt Date: 20220603
  Transmission Date: 20220721
  Serious: No
  Sender: FDA-Public Use
  Company Number: US-BRAINTREE LABORATORIES, INC.-2022BTE00110

PATIENT
  Age: 66 Year
  Sex: Male
  Weight: 86.621 kg

DRUGS (2)
  1. SUTAB [Suspect]
     Active Substance: MAGNESIUM SULFATE\POTASSIUM CHLORIDE\SODIUM SULFATE
     Indication: Colonoscopy
     Dosage: 2 X 12 TABLETS, 1X
     Route: 048
     Dates: start: 20211221, end: 20211222
  2. UNSPECIFIED INGREDIENT [Concomitant]
     Active Substance: UNSPECIFIED INGREDIENT

REACTIONS (1)
  - Drug ineffective [Recovered/Resolved]

NARRATIVE: CASE EVENT DATE: 20211222
